FAERS Safety Report 10181415 (Version 1)
Quarter: 2014Q2

REPORT INFORMATION
  Report Type: Other
  Country: US (occurrence: US)
  Receive Date: 20140519
  Receipt Date: 20140519
  Transmission Date: 20141212
  Serious: Yes (Death)
  Sender: FDA-Public Use
  Company Number: US-BRISTOL-MYERS SQUIBB COMPANY-20784823

PATIENT
  Age: 12 Year
  Sex: Male

DRUGS (1)
  1. PACLITAXEL [Suspect]
     Indication: KAPOSI^S SARCOMA

REACTIONS (1)
  - Malignant neoplasm progression [Fatal]
